FAERS Safety Report 11092124 (Version 1)
Quarter: 2015Q2

REPORT INFORMATION
  Report Type: Spontaneous
  Country: US (occurrence: US)
  Receive Date: 20150505
  Receipt Date: 20150505
  Transmission Date: 20150821
  Serious: No
  Sender: FDA-Public Use
  Company Number: US-009507513-1505USA001205

PATIENT
  Age: 17 Year
  Sex: Male

DRUGS (2)
  1. HEXADROL [Suspect]
     Active Substance: DEXAMETHASONE
     Indication: GLIOMA
     Dosage: UNK
  2. BEVACIZUMAB [Suspect]
     Active Substance: BEVACIZUMAB
     Dosage: 10 MG/KG, EVERY 2 WEEKS FOR FIVE DOSES

REACTIONS (5)
  - Weight increased [Unknown]
  - Cushingoid [Unknown]
  - Skin striae [Unknown]
  - Adverse drug reaction [Unknown]
  - Hypertension [Unknown]
